FAERS Safety Report 7483372-3 (Version None)
Quarter: 2011Q2

REPORT INFORMATION
  Report Type: 
  Country: None (occurrence: None)
  Receive Date: 20110517
  Receipt Date: 20110509
  Transmission Date: 20111010
  Serious: Yes (Other)
  Sender: FDA-Public Use
  Company Number: US-BAYER-US-2007-033540

PATIENT
  Age: 37 Year
  Sex: Female
  Weight: 58 kg

DRUGS (5)
  1. LEVOTHYROXINE SODIUM [Concomitant]
     Indication: THYROID DISORDER
     Dosage: UNK, UNK
  2. YAZ [Suspect]
     Indication: ACNE
     Dosage: 1 TAB(S), 1X/DAY [DAILY DOSE: 1 TAB(S)]
     Route: 048
     Dates: start: 20070301, end: 20070807
  3. LIOTHYRONINE SODIUM [Concomitant]
     Indication: THYROID DISORDER
     Dosage: UNK, UNK
  4. CYTOMEL [Concomitant]
     Dosage: UNK, UNK
  5. LEVOXYL [Concomitant]
     Dosage: UNK, UNK

REACTIONS (13)
  - PARAESTHESIA [None]
  - SLEEP DISORDER [None]
  - DEPRESSION [None]
  - BLINDNESS [None]
  - MIGRAINE [None]
  - VOMITING [None]
  - ANXIETY [None]
  - SINUSITIS [None]
  - ATRIAL SEPTAL DEFECT [None]
  - INJURY [None]
  - PAIN [None]
  - CEREBROVASCULAR ACCIDENT [None]
  - EMOTIONAL DISTRESS [None]
